FAERS Safety Report 13551771 (Version 2)
Quarter: 2017Q2

REPORT INFORMATION
  Report Type: Spontaneous
  Country: IT (occurrence: DE)
  Receive Date: 20170516
  Receipt Date: 20170526
  Transmission Date: 20170830
  Serious: Yes (Death, Other)
  Sender: FDA-Public Use
  Company Number: DE-UNICHEM LABORATORIES LIMITED-UCM201705-000115

PATIENT
  Age: 35 Year
  Sex: Female
  Weight: 48 kg

DRUGS (8)
  1. TRAMADOL. [Suspect]
     Active Substance: TRAMADOL
     Indication: SUICIDE ATTEMPT
  2. LAMOTRIGINE. [Suspect]
     Active Substance: LAMOTRIGINE
     Indication: SUICIDE ATTEMPT
  3. ZOLPIDEM [Suspect]
     Active Substance: ZOLPIDEM\ZOLPIDEM TARTRATE
     Indication: SUICIDE ATTEMPT
  4. O-DESMETHYLVENLAFAXINE [Suspect]
     Active Substance: DESVENLAFAXINE
     Indication: SUICIDE ATTEMPT
  5. DIPHENHYDRAMINE. [Suspect]
     Active Substance: DIPHENHYDRAMINE
     Indication: SUICIDE ATTEMPT
  6. PREGABALIN. [Suspect]
     Active Substance: PREGABALIN
     Indication: SUICIDE ATTEMPT
  7. ZOPICLONE [Suspect]
     Active Substance: ZOPICLONE
     Indication: SUICIDE ATTEMPT
  8. MODAFINIL. [Suspect]
     Active Substance: MODAFINIL
     Indication: SUICIDE ATTEMPT

REACTIONS (5)
  - Intentional overdose [Fatal]
  - Haemorrhage subcutaneous [Unknown]
  - Completed suicide [Fatal]
  - Toxicity to various agents [Fatal]
  - Hypersensitivity vasculitis [Unknown]
